FAERS Safety Report 8400458-7 (Version None)
Quarter: 2012Q2

REPORT INFORMATION
  Report Type: 
  Country: None (occurrence: None)
  Receive Date: 20120531
  Receipt Date: 20120523
  Transmission Date: 20120825
  Serious: Yes (Death, Hospitalization)
  Sender: FDA-Public Use
  Company Number: JP-AMGEN-JPNCT2012020893

PATIENT
  Age: 86 Year
  Sex: Male
  Weight: 66 kg

DRUGS (2)
  1. PANITUMUMAB [Suspect]
     Indication: COLORECTAL CANCER
     Dosage: UNK UNK, Q2WK
     Route: 041
     Dates: start: 20120214, end: 20120214
  2. PANITUMUMAB [Suspect]
     Dosage: 350 MG, UNK
     Route: 041
     Dates: start: 20120229, end: 20120314

REACTIONS (1)
  - INTERSTITIAL LUNG DISEASE [None]
